FAERS Safety Report 9950051 (Version 1)
Quarter: 2014Q1

REPORT INFORMATION
  Report Type: Report from Study
  Country: US (occurrence: US)
  Receive Date: 20140304
  Receipt Date: 20140304
  Transmission Date: 20141002
  Serious: No
  Sender: FDA-Public Use
  Company Number: US-ABBVIE-13P-163-1067080-00

PATIENT
  Age: 42 Year
  Sex: Female

DRUGS (8)
  1. HUMIRA [Suspect]
     Indication: RHEUMATOID ARTHRITIS
     Dates: start: 20121102
  2. PLAQUENIL [Concomitant]
     Indication: RHEUMATOID ARTHRITIS
  3. MOBIC [Concomitant]
     Indication: RHEUMATOID ARTHRITIS
     Dosage: 7.5 MG DAILY
  4. LORTAB [Concomitant]
     Indication: RHEUMATOID ARTHRITIS
  5. PAXIL [Concomitant]
     Indication: DEPRESSION
     Dosage: 30 MG DAILY
  6. DEPAKOTE [Concomitant]
     Indication: BIPOLAR DISORDER
  7. LEVOTHYROXIN [Concomitant]
     Indication: HYPOTHYROIDISM
     Dosage: 0.075 MCG DAILY
  8. METOPROLOL [Concomitant]
     Indication: HYPERTENSION

REACTIONS (2)
  - Inappropriate schedule of drug administration [Unknown]
  - Hepatitis C [Not Recovered/Not Resolved]
